FAERS Safety Report 8812519 (Version 2)
Quarter: 2014Q1

REPORT INFORMATION
  Report Type: Spontaneous
  Country: US (occurrence: US)
  Receive Date: 20120927
  Receipt Date: 20140103
  Transmission Date: 20141002
  Serious: No
  Sender: FDA-Public Use
  Company Number: US-ASTRAZENECA-2012SE72048

PATIENT
  Age: 31 Year
  Sex: Male
  Weight: 102.1 kg

DRUGS (2)
  1. NEXIUM [Suspect]
     Indication: GASTROOESOPHAGEAL REFLUX DISEASE
     Route: 048
     Dates: start: 2001, end: 201311
  2. NEXIUM [Suspect]
     Indication: ULCER
     Route: 048
     Dates: start: 2001, end: 201311

REACTIONS (5)
  - Adverse event [Unknown]
  - Diabetes mellitus [Unknown]
  - Drug dose omission [Unknown]
  - Off label use [Unknown]
  - Intentional drug misuse [Unknown]
